FAERS Safety Report 4887005-1 (Version None)
Quarter: 2006Q1

REPORT INFORMATION
  Report Type: 
  Country: None (occurrence: None)
  Receive Date: 20060120
  Receipt Date: 20051005
  Transmission Date: 20060701
  Serious: Yes (Death, Hospitalization, Other)
  Sender: FDA-Public Use
  Company Number: US-MERCK-0510USA05554

PATIENT
  Age: 87 Year
  Sex: Female
  Weight: 43 kg

DRUGS (13)
  1. VIOXX [Suspect]
     Indication: BACK PAIN
     Route: 048
     Dates: start: 20030716, end: 20031001
  2. VIOXX [Suspect]
     Route: 048
     Dates: start: 20030716, end: 20031001
  3. VIOXX [Suspect]
     Route: 048
     Dates: start: 20040201, end: 20040801
  4. VIOXX [Suspect]
     Route: 048
     Dates: start: 20040201, end: 20040801
  5. DIGOXIN [Concomitant]
     Route: 065
  6. METFORMIN [Concomitant]
     Route: 065
  7. LACTAID CAPLETS [Concomitant]
     Route: 065
  8. CALCIUM (UNSPECIFIED) [Concomitant]
     Route: 065
  9. ATENOLOL [Concomitant]
     Route: 065
  10. MECLIZINE [Concomitant]
     Route: 065
  11. VITAPLEX [Concomitant]
     Route: 065
  12. WARFARIN [Concomitant]
     Route: 065
  13. TOPROL-XL [Concomitant]
     Route: 065

REACTIONS (7)
  - ATRIAL FIBRILLATION [None]
  - DEATH [None]
  - GASTROINTESTINAL HAEMORRHAGE [None]
  - ISCHAEMIC STROKE [None]
  - MYOCARDIAL INFARCTION [None]
  - RETINAL ARTERY OCCLUSION [None]
  - SPINAL OSTEOARTHRITIS [None]
